FAERS Safety Report 7573821-4 (Version None)
Quarter: 2011Q2

REPORT INFORMATION
  Report Type: 
  Country: None (occurrence: None)
  Receive Date: 20110627
  Receipt Date: 20110607
  Transmission Date: 20111010
  Serious: Yes (Hospitalization)
  Sender: FDA-Public Use
  Company Number: A0812425A

PATIENT
  Age: 69 Year
  Sex: Female

DRUGS (5)
  1. AVANDIA [Suspect]
     Route: 048
  2. ZESTRIL [Concomitant]
  3. AVANDAMET [Suspect]
     Route: 048
  4. CARDIZEM [Concomitant]
  5. NORVASC [Concomitant]

REACTIONS (2)
  - ATRIAL FIBRILLATION [None]
  - CARDIAC PACEMAKER INSERTION [None]
